FAERS Safety Report 6915573 (Version 4)
Quarter: 2018Q4

REPORT INFORMATION
  Report Type: Report from Study
  Country: JP (occurrence: JP)
  Receive Date: 20090223
  Receipt Date: 20181219
  Transmission Date: 20190205
  Serious: Yes (Death, Hospitalization, Other)
  Sender: FDA-Public Use
  Company Number: PHHY2009JP05626

PATIENT
  Age: 76 Year
  Sex: Male
  Weight: 51 kg

DRUGS (7)
  1. ALDACTONE-A [Concomitant]
     Active Substance: SPIRONOLACTONE
     Dosage: 25 MG, UNK
     Route: 048
     Dates: start: 20080110, end: 20080123
  2. WARFARIN [Concomitant]
     Active Substance: WARFARIN
     Dosage: UNK
     Route: 048
     Dates: start: 20080101
  3. DIOVAN [Suspect]
     Active Substance: VALSARTAN
     Indication: CARDIAC FAILURE
     Dosage: 20 MG, QD
     Route: 048
     Dates: start: 20080104, end: 20080123
  4. DIOVAN [Suspect]
     Active Substance: VALSARTAN
     Indication: HYPERTENSION
  5. TAKEPRON [Concomitant]
     Active Substance: LANSOPRAZOLE
     Dosage: UNK
     Route: 048
     Dates: start: 20080101
  6. LASIX [Concomitant]
     Active Substance: FUROSEMIDE
     Dosage: 40 MG, UNK
     Route: 048
     Dates: end: 20080123
  7. LASIX [Concomitant]
     Active Substance: FUROSEMIDE
     Dosage: 20 MG, UNK
     Dates: start: 20080110

REACTIONS (5)
  - Acute respiratory distress syndrome [Fatal]
  - Blood pressure decreased [Unknown]
  - Dyspnoea [Fatal]
  - Cardiac failure chronic [Fatal]
  - Endotracheal intubation [Fatal]

NARRATIVE: CASE EVENT DATE: 200801
